FAERS Safety Report 7256556-7 (Version None)
Quarter: 2011Q1

REPORT INFORMATION
  Report Type: 
  Country: None (occurrence: None)
  Receive Date: 20110129
  Receipt Date: 20100707
  Transmission Date: 20110831
  Serious: No
  Sender: FDA-Public Use
  Company Number: US-ABBOTT-10P-163-0656625-00

PATIENT
  Sex: Male
  Weight: 68.1 kg

DRUGS (10)
  1. FOLIC ACID [Concomitant]
     Indication: PRODUCT USED FOR UNKNOWN INDICATION
  2. IRON SUPPLEMENT [Concomitant]
     Indication: ANAEMIA
     Route: 048
  3. HUMIRA [Suspect]
     Indication: CROHN'S DISEASE
     Route: 058
     Dates: start: 20070101
  4. HUMIRA [Suspect]
     Indication: COLITIS ULCERATIVE
  5. VICODIN [Concomitant]
     Indication: PAIN
  6. CLINDAMYCIN [Concomitant]
     Indication: PRODUCT USED FOR UNKNOWN INDICATION
  7. MULTI-VITAMIN [Concomitant]
     Indication: PRODUCT USED FOR UNKNOWN INDICATION
  8. CLONAZEPAM [Concomitant]
     Indication: ANXIETY
     Route: 048
  9. VITAMIN A [Concomitant]
     Indication: PRODUCT USED FOR UNKNOWN INDICATION
  10. BOOST [Concomitant]
     Indication: PRODUCT USED FOR UNKNOWN INDICATION

REACTIONS (9)
  - HAEMATOCHEZIA [None]
  - PAIN [None]
  - WEIGHT DECREASED [None]
  - COLITIS [None]
  - MUSCLE SPASMS [None]
  - FREQUENT BOWEL MOVEMENTS [None]
  - VOMITING [None]
  - POLYP [None]
  - DECREASED APPETITE [None]
